FAERS Safety Report 6868533-6 (Version None)
Quarter: 2010Q3

REPORT INFORMATION
  Report Type: 
  Country: None (occurrence: None)
  Receive Date: 20100722
  Receipt Date: 20080602
  Transmission Date: 20110219
  Serious: No
  Sender: FDA-Public Use
  Company Number: US-PFIZER INC-2008047626

PATIENT
  Sex: Female
  Weight: 62.727 kg

DRUGS (18)
  1. CHANTIX [Suspect]
     Indication: SMOKING CESSATION THERAPY
     Route: 048
     Dates: start: 20080528
  2. SOMA [Concomitant]
     Indication: MUSCLE SPASMS
  3. PROMETHAZINE [Concomitant]
     Indication: NAUSEA
  4. CELLCEPT [Concomitant]
  5. ACETYLSALICYLIC ACID [Concomitant]
  6. POTASSIUM CHLORIDE [Concomitant]
  7. ACYCLOVIR [Concomitant]
  8. HYDROCHLOROTHIAZIDE [Concomitant]
  9. METOCLOPRAMIDE [Concomitant]
  10. PREDNISONE [Concomitant]
  11. LORATADINE [Concomitant]
  12. OXYCONTIN [Concomitant]
  13. ATROVENT [Concomitant]
  14. ALBUTEROL [Concomitant]
  15. CELEXA [Concomitant]
  16. REMERON [Concomitant]
  17. ZANTAC [Concomitant]
  18. DIAZEPAM [Concomitant]

REACTIONS (3)
  - DYSPHONIA [None]
  - PRODUCTIVE COUGH [None]
  - PYREXIA [None]
